FAERS Safety Report 25029095 (Version 1)
Quarter: 2025Q1

REPORT INFORMATION
  Report Type: Spontaneous
  Country: CA (occurrence: CA)
  Receive Date: 20250303
  Receipt Date: 20250303
  Transmission Date: 20250408
  Serious: Yes (Other)
  Sender: TEVA
  Company Number: CA-TEVA-VS-3305035

PATIENT
  Age: 54 Year
  Sex: Female

DRUGS (11)
  1. VENLAFAXINE HYDROCHLORIDE [Suspect]
     Active Substance: VENLAFAXINE HYDROCHLORIDE
     Indication: Migraine
     Route: 065
  2. PROPRANOLOL [Concomitant]
     Active Substance: PROPRANOLOL HYDROCHLORIDE
     Indication: Product used for unknown indication
     Route: 065
  3. MIRABEGRON [Suspect]
     Active Substance: MIRABEGRON
     Indication: Product used for unknown indication
     Route: 065
  4. NITROGLYCERIN [Suspect]
     Active Substance: NITROGLYCERIN
     Indication: Product used for unknown indication
     Route: 065
  5. QUETIAPINE [Suspect]
     Active Substance: QUETIAPINE
     Indication: Migraine
     Route: 065
  6. AIMOVIG [Suspect]
     Active Substance: ERENUMAB-AOOE
     Indication: Migraine
     Route: 065
  7. ESTRADIOL VALERATE [Concomitant]
     Active Substance: ESTRADIOL VALERATE
     Indication: Product used for unknown indication
     Route: 065
  8. SYNTHROID [Suspect]
     Active Substance: LEVOTHYROXINE SODIUM
     Indication: Product used for unknown indication
     Route: 065
  9. TOPIRAMATE [Suspect]
     Active Substance: TOPIRAMATE
     Indication: Migraine
     Route: 065
  10. CLONAZEPAM [Suspect]
     Active Substance: CLONAZEPAM
     Indication: Migraine
     Route: 065
  11. GABAPENTIN [Concomitant]
     Active Substance: GABAPENTIN
     Indication: Product used for unknown indication
     Route: 065

REACTIONS (7)
  - Migraine [Recovering/Resolving]
  - Dyspnoea [Recovering/Resolving]
  - Off label use [Recovering/Resolving]
  - Headache [Recovering/Resolving]
  - Cardiac failure congestive [Recovering/Resolving]
  - Pain [Recovering/Resolving]
  - Skin cancer [Recovering/Resolving]
